FAERS Safety Report 4368240-8 (Version None)
Quarter: 2004Q2

REPORT INFORMATION
  Report Type: 
  Country: None (occurrence: None)
  Receive Date: 20040525
  Receipt Date: 20040511
  Transmission Date: 20050107
  Serious: Yes (Hospitalization, Other)
  Sender: FDA-Public Use
  Company Number: 2004212993US

PATIENT
  Age: 53 Year
  Sex: Female

DRUGS (4)
  1. DETROL LA [Suspect]
     Indication: POLLAKIURIA
     Dosage: 4 MG, QD, ORAL
     Route: 048
     Dates: start: 20040201, end: 20040501
  2. DRUG USED IN DIABETES [Concomitant]
  3. MULTIVITAMIN [Concomitant]
  4. CALCIUM [Concomitant]

REACTIONS (1)
  - BLADDER DISORDER [None]
